FAERS Safety Report 14917952 (Version 1)
Quarter: 2018Q2

REPORT INFORMATION
  Report Type: Spontaneous
  Country: US (occurrence: US)
  Receive Date: 20180521
  Receipt Date: 20180521
  Transmission Date: 20180711
  Serious: Yes (Hospitalization, Other)
  Sender: FDA-Public Use
  Company Number: US-AUROBINDO-AUR-APL-2018-025930

PATIENT
  Age: 76 Year
  Sex: Male

DRUGS (1)
  1. CAPECITABINE. [Suspect]
     Active Substance: CAPECITABINE
     Indication: BREAST CANCER METASTATIC
     Dosage: UNK
     Route: 065

REACTIONS (13)
  - Cardiac failure [Unknown]
  - Bundle branch block left [Unknown]
  - Mitral valve incompetence [Unknown]
  - Vasodilatation [Unknown]
  - Fatigue [Unknown]
  - Oedema peripheral [Unknown]
  - Left ventricular dysfunction [Unknown]
  - Pulmonary congestion [Unknown]
  - Livedo reticularis [Unknown]
  - Dyspnoea exertional [Recovered/Resolved]
  - Ejection fraction [Recovering/Resolving]
  - Atrial fibrillation [Unknown]
  - Cardiomyopathy [Unknown]
